FAERS Safety Report 8885272 (Version 7)
Quarter: 2013Q2

REPORT INFORMATION
  Report Type: Report from Study
  Country: NO (occurrence: NO)
  Receive Date: 20121102
  Receipt Date: 20130510
  Transmission Date: 20140414
  Serious: Yes (Life-Threatening, Hospitalization, Other)
  Sender: FDA-Public Use
  Company Number: NO-GENZYME-CLOF-1002312

PATIENT
  Age: 42 Year
  Sex: Male
  Weight: 73 kg

DRUGS (7)
  1. EVOLTRA [Suspect]
     Indication: ACUTE MYELOID LEUKAEMIA
     Dosage: UNK (CYCLE 1)
     Route: 065
  2. EVOLTRA [Suspect]
     Dosage: 18.7 MG, UNK (CYCLE 2)
     Route: 042
     Dates: start: 20120918, end: 20120922
  3. CYTARABINE [Suspect]
     Indication: ACUTE MYELOID LEUKAEMIA
     Dosage: UNK (CYCLE 1)
     Route: 065
  4. CYTARABINE [Suspect]
     Dosage: 3740 MG, UNK (CYCLE 2)
     Route: 042
     Dates: start: 20120918, end: 20120923
  5. AMSACRINE [Suspect]
     Indication: ACUTE MYELOID LEUKAEMIA
     Dosage: UNK (CYCLE 1)
     Route: 065
  6. AMSACRINE [Suspect]
     Dosage: 224.4 MG, UNK (CYCLE 2)
     Route: 042
     Dates: start: 20120921, end: 20120923
  7. ZOPIKLON [Concomitant]
     Indication: SLEEP DISORDER
     Dosage: 7.5 MG, UNK
     Route: 048
     Dates: start: 20120928

REACTIONS (7)
  - Posterior reversible encephalopathy syndrome [Recovered/Resolved]
  - Atrioventricular block [Recovered/Resolved]
  - Hallucination [Unknown]
  - Hypertension [Unknown]
  - Dehydration [Unknown]
  - Caecitis [Not Recovered/Not Resolved]
  - Neutrophil count decreased [Unknown]
